FAERS Safety Report 16876654 (Version 1)
Quarter: 2019Q4

REPORT INFORMATION
  Report Type: Spontaneous
  Country: FR (occurrence: FR)
  Receive Date: 20191002
  Receipt Date: 20191002
  Transmission Date: 20200122
  Serious: Yes (Hospitalization, Other)
  Sender: FDA-Public Use
  Company Number: FR-ASTRAZENECA-2019SF39665

PATIENT
  Age: 18235 Day
  Sex: Female
  Weight: 62 kg

DRUGS (11)
  1. MOVICOL [Concomitant]
     Active Substance: POLYETHYLENE GLYCOL 3350\POTASSIUM CHLORIDE\SODIUM BICARBONATE\SODIUM CHLORIDE
     Indication: PRODUCT USED FOR UNKNOWN INDICATION
  2. INDOCID [Concomitant]
     Active Substance: INDOMETHACIN
     Indication: HEADACHE
  3. DOLIPRANE [Concomitant]
     Active Substance: ACETAMINOPHEN
     Indication: HEADACHE
     Dosage: 1.0G UNKNOWN
     Dates: start: 20171214
  4. IMOVANE [Concomitant]
     Active Substance: ZOPICLONE
     Indication: PRODUCT USED FOR UNKNOWN INDICATION
     Dates: start: 20171216
  5. NEURONTIN [Concomitant]
     Active Substance: GABAPENTIN
     Indication: PRODUCT USED FOR UNKNOWN INDICATION
     Dosage: UNK
  6. VERAPAMIL [Concomitant]
     Active Substance: VERAPAMIL HYDROCHLORIDE
     Indication: HEADACHE
     Dosage: 120.0MG UNKNOWN
     Dates: start: 20171214, end: 20171218
  7. PAROXETINE. [Concomitant]
     Active Substance: PAROXETINE
     Indication: HEADACHE
  8. ZOMIG [Suspect]
     Active Substance: ZOLMITRIPTAN
     Indication: CLUSTER HEADACHE
     Dosage: UNK
     Route: 048
     Dates: start: 20171216, end: 20171219
  9. LOVENOX [Concomitant]
     Active Substance: ENOXAPARIN SODIUM
     Indication: PRODUCT USED FOR UNKNOWN INDICATION
     Route: 058
  10. SUMATRIPTAN. [Suspect]
     Active Substance: SUMATRIPTAN
     Indication: CLUSTER HEADACHE
     Dosage: UNK
     Route: 058
     Dates: end: 20171222
  11. MOPRAL [Concomitant]
     Active Substance: OMEPRAZOLE
     Indication: PAIN

REACTIONS (5)
  - Mydriasis [Not Recovered/Not Resolved]
  - Angle closure glaucoma [Not Recovered/Not Resolved]
  - Visual field defect [Unknown]
  - Visual field defect [Not Recovered/Not Resolved]
  - Photophobia [Not Recovered/Not Resolved]

NARRATIVE: CASE EVENT DATE: 20180125
